FAERS Safety Report 16226269 (Version 1)
Quarter: 2019Q2

REPORT INFORMATION
  Report Type: Spontaneous
  Country: US (occurrence: US)
  Receive Date: 20190423
  Receipt Date: 20190423
  Transmission Date: 20190711
  Serious: Yes (Other)
  Sender: FDA-Public Use
  Company Number: US-HIKMA PHARMACEUTICALS USA INC.-US-H14001-19-02499

PATIENT
  Age: 65 Year
  Sex: Female

DRUGS (6)
  1. MYCOPHENOLATE MOFETIL. [Suspect]
     Active Substance: MYCOPHENOLATE MOFETIL
     Indication: RAYNAUD^S PHENOMENON
     Route: 065
  2. PREDNISONE. [Suspect]
     Active Substance: PREDNISONE
     Indication: CREST SYNDROME
  3. METHOTREXATE. [Suspect]
     Active Substance: METHOTREXATE
     Indication: CREST SYNDROME
  4. PREDNISONE. [Suspect]
     Active Substance: PREDNISONE
     Indication: RAYNAUD^S PHENOMENON
     Route: 065
  5. METHOTREXATE. [Suspect]
     Active Substance: METHOTREXATE
     Indication: RAYNAUD^S PHENOMENON
     Route: 065
  6. MYCOPHENOLATE MOFETIL. [Suspect]
     Active Substance: MYCOPHENOLATE MOFETIL
     Indication: CREST SYNDROME

REACTIONS (3)
  - Glomerulonephritis rapidly progressive [Recovering/Resolving]
  - Histoplasmosis disseminated [Recovering/Resolving]
  - Off label use [Unknown]
